FAERS Safety Report 9511257 (Version 1)
Quarter: 2013Q3

REPORT INFORMATION
  Report Type: Spontaneous
  Country: US (occurrence: None)
  Receive Date: 20130906
  Receipt Date: 20130906
  Transmission Date: 20140515
  Serious: Yes (Hospitalization)
  Sender: FDA-Public Use
  Company Number: DSU-2013-04444

PATIENT
  Age: 90 Year
  Sex: Female
  Weight: 65.77 kg

DRUGS (4)
  1. WELCHOL (COLESEVELAM HYDROCHLORIDE) (625 MILLIGRAM, TABLET) (COLESEVELAM HYDROCHLORIDE) [Suspect]
     Indication: HYPERCHOLESTEROLAEMIA
     Dosage: 3750 MG (3750 MG, QD), PER ORAL
  2. LEVOTHYROXINE (LEVOTHYROXINE) (LEVOTHYROXINE) [Concomitant]
  3. CITALOPRAM (CITALOPRAM) (CITALOPRAM) [Concomitant]
  4. VESICARE (SOLIFENACIN) (SOLIFENACIN) [Concomitant]

REACTIONS (2)
  - Dementia [None]
  - Fall [None]
